FAERS Safety Report 21273665 (Version 2)
Quarter: 2022Q4

REPORT INFORMATION
  Report Type: Spontaneous
  Country: DE (occurrence: DE)
  Receive Date: 20220831
  Receipt Date: 20221003
  Transmission Date: 20230113
  Serious: Yes (Other)
  Sender: FDA-Public Use
  Company Number: DE-NOVARTISPH-NVSC2022DE193196

PATIENT
  Age: 74 Year
  Sex: Female
  Weight: 70 kg

DRUGS (23)
  1. DEXAMETHASONE [Suspect]
     Active Substance: DEXAMETHASONE
     Indication: Product used for unknown indication
     Dosage: 40 MG
     Route: 065
     Dates: start: 20150917, end: 201511
  2. DEXAMETHASONE [Suspect]
     Active Substance: DEXAMETHASONE
     Dosage: 20 MG
     Route: 065
     Dates: start: 20151119
  3. LENALIDOMIDE [Suspect]
     Active Substance: LENALIDOMIDE
     Indication: Product used for unknown indication
     Dosage: 25 MG
     Route: 065
     Dates: start: 20150917, end: 20150923
  4. LENALIDOMIDE [Suspect]
     Active Substance: LENALIDOMIDE
     Dosage: 25 MG
     Route: 065
     Dates: start: 20151001, end: 20151014
  5. LENALIDOMIDE [Suspect]
     Active Substance: LENALIDOMIDE
     Dosage: 25 MG
     Route: 065
     Dates: start: 20151022, end: 20151125
  6. LENALIDOMIDE [Suspect]
     Active Substance: LENALIDOMIDE
     Dosage: 20 MG
     Route: 065
     Dates: start: 20151129, end: 20170913
  7. JANUVIA [Concomitant]
     Active Substance: SITAGLIPTIN PHOSPHATE
     Indication: Diabetes mellitus
     Dosage: 100 MG, QD
     Route: 048
  8. RASILEZ [Concomitant]
     Active Substance: ALISKIREN
     Indication: Essential hypertension
     Dosage: 300 MG, QD
     Route: 048
  9. METAMIZOLE [Concomitant]
     Active Substance: METAMIZOLE
     Indication: Back pain
     Dosage: 500 MG, QID, AS NEEDED
     Route: 048
     Dates: start: 20151015
  10. HYDROCHLOROTHIAZIDE [Concomitant]
     Active Substance: HYDROCHLOROTHIAZIDE
     Indication: Product used for unknown indication
     Dosage: 25 MG, QD
     Route: 048
  11. VENLAFAXINE HYDROCHLORIDE [Concomitant]
     Active Substance: VENLAFAXINE HYDROCHLORIDE
     Indication: Diarrhoea
     Dosage: 500 ML, QD
     Route: 042
     Dates: start: 20151112, end: 20151112
  12. ROCEPHIN [Concomitant]
     Active Substance: CEFTRIAXONE SODIUM
     Indication: Bronchitis
     Dosage: 2 MG, QD (AS NEEDED)
     Route: 042
     Dates: start: 20160912, end: 20160913
  13. LOPERAMIDE HYDROCHLORIDE [Concomitant]
     Active Substance: LOPERAMIDE HYDROCHLORIDE
     Indication: Diarrhoea
     Dosage: 2 MG, PRN
     Route: 048
     Dates: start: 20151112
  14. BISOPROLOL [Concomitant]
     Active Substance: BISOPROLOL
     Indication: Essential hypertension
     Dosage: 5 MG, QD
     Route: 048
  15. LERCANIDIPINO [Concomitant]
     Indication: Product used for unknown indication
     Dosage: 20 MG, QD
     Route: 048
  16. CALCIUM\CHOLECALCIFEROL [Concomitant]
     Active Substance: CALCIUM\CHOLECALCIFEROL
     Indication: Hypocalcaemia
     Dosage: 1250.4 MG, QD
     Route: 048
     Dates: start: 20151105, end: 20151203
  17. CALCIUM\CHOLECALCIFEROL [Concomitant]
     Active Substance: CALCIUM\CHOLECALCIFEROL
     Indication: Prophylaxis
     Dosage: 1250.4 MG, BID
     Route: 048
     Dates: start: 20151203
  18. KALINOR-RETARD P [Concomitant]
     Indication: Diarrhoea
     Dosage: 600 MG, QD
     Route: 048
     Dates: start: 20151112, end: 20151203
  19. KALINOR-RETARD P [Concomitant]
     Indication: Hypocalcaemia
     Dosage: 600 MG, TID
     Route: 048
     Dates: start: 20151203
  20. CEFUROXIM-SAAR [Concomitant]
     Indication: Bronchitis
     Dosage: 500 MG, PRN
     Route: 048
     Dates: start: 20160914, end: 20160919
  21. ZOMETA [Concomitant]
     Active Substance: ZOLEDRONIC ACID
     Indication: Bone disorder
     Dosage: 4 MG, QMO
     Route: 042
     Dates: start: 20151119, end: 20161117
  22. ZOMETA [Concomitant]
     Active Substance: ZOLEDRONIC ACID
     Dosage: 4 MG, Q3MO
     Route: 042
     Dates: start: 20170406
  23. CLINDAMYCIN PHOSPHATE [Concomitant]
     Active Substance: CLINDAMYCIN PHOSPHATE
     Indication: Tooth extraction
     Dosage: 600 MG
     Route: 048
     Dates: start: 20170203, end: 20170208

REACTIONS (3)
  - Metastases to liver [Unknown]
  - Colon cancer metastatic [Unknown]
  - Metastases to lung [Unknown]

NARRATIVE: CASE EVENT DATE: 20211201
